FAERS Safety Report 14260170 (Version 1)
Quarter: 2017Q4

REPORT INFORMATION
  Report Type: Spontaneous
  Country: IT (occurrence: IT)
  Receive Date: 20171207
  Receipt Date: 20171207
  Transmission Date: 20180321
  Serious: Yes (Other)
  Sender: FDA-Public Use
  Company Number: PHHY2017IT179768

PATIENT
  Age: 54 Year
  Sex: Male

DRUGS (6)
  1. LEVOPRAID (SULPIRIDE) [Interacting]
     Active Substance: SULPIRIDE
     Indication: ANXIETY
     Dosage: UNK
     Route: 048
  2. LEVOPRAID (SULPIRIDE) [Interacting]
     Active Substance: SULPIRIDE
     Indication: DEPRESSION
     Dosage: 25 MG TABLETS, 20 TABLETS
     Route: 048
     Dates: start: 20140311, end: 20170311
  3. PRAMIPEXOLE DIHYDROCHLORIDE MONOHYDRATE [Suspect]
     Active Substance: PRAMIPEXOLE DIHYDROCHLORIDE
     Indication: RESTLESS LEGS SYNDROME
     Dosage: 0.18 G, UNK
     Route: 048
     Dates: start: 20161111, end: 20170311
  4. CARDIOASPIRIN [Concomitant]
     Active Substance: ASPIRIN
     Indication: PRODUCT USED FOR UNKNOWN INDICATION
     Dosage: 100 MG GASTRO-RESISTANT TABLETS 30 TABLETS
     Route: 065
  5. RIVOTRIL [Suspect]
     Active Substance: CLONAZEPAM
     Indication: PRODUCT USED FOR UNKNOWN INDICATION
     Dosage: 2.5MG/ML ORAL DROPS, SOLUTION 10 ML VIAL
     Route: 048
     Dates: start: 20170310, end: 20170311
  6. PRAMIPEXOLE DIHYDROCHLORIDE MONOHYDRATE [Interacting]
     Active Substance: PRAMIPEXOLE DIHYDROCHLORIDE
     Dosage: 0.36 G, QD
     Route: 048
     Dates: start: 20170311, end: 20170311

REACTIONS (4)
  - Confusional state [Recovering/Resolving]
  - Hallucination [Recovering/Resolving]
  - Restless legs syndrome [Recovering/Resolving]
  - Drug interaction [Unknown]

NARRATIVE: CASE EVENT DATE: 20170311
